FAERS Safety Report 13001471 (Version 1)
Quarter: 2016Q4

REPORT INFORMATION
  Report Type: Spontaneous
  Country: US (occurrence: US)
  Receive Date: 20161203
  Receipt Date: 20161203
  Transmission Date: 20170207
  Serious: Yes (Hospitalization)
  Sender: FDA-Public Use
  Company Number: None

PATIENT
  Age: 56 Year
  Sex: Female
  Weight: 54 kg

DRUGS (1)
  1. CISPLATIN. [Suspect]
     Active Substance: CISPLATIN
     Dates: end: 20161128

REACTIONS (15)
  - Nausea [None]
  - Haemoglobin decreased [None]
  - Pyelocaliectasis [None]
  - Catheter site pain [None]
  - Ureteral disorder [None]
  - Urinary tract stoma complication [None]
  - Candida test positive [None]
  - Enterococcus test positive [None]
  - Urine output decreased [None]
  - Staphylococcus test positive [None]
  - Vomiting [None]
  - Urine leukocyte esterase positive [None]
  - Urine abnormality [None]
  - Nitrite urine present [None]
  - Pathogen resistance [None]

NARRATIVE: CASE EVENT DATE: 20161123
